FAERS Safety Report 6018765-4 (Version None)
Quarter: 2008Q4

REPORT INFORMATION
  Report Type: 
  Country: None (occurrence: None)
  Receive Date: 20081222
  Receipt Date: 20081210
  Transmission Date: 20090506
  Serious: Yes (Other)
  Sender: FDA-Public Use
  Company Number: DSU-2008-01628

PATIENT
  Age: 73 Year
  Sex: Female
  Weight: 69.8539 kg

DRUGS (5)
  1. WELCHOL [Suspect]
     Indication: HYPERLIPIDAEMIA
     Dosage: 3750 MG (1875  MG,BID), PER ORAL
     Route: 048
     Dates: start: 20080905
  2. METOPROLOL SUCCINATE [Suspect]
     Indication: HEART RATE IRREGULAR
     Dosage: 100 MG (50 MG,BID), PER ORAL
     Route: 048
     Dates: start: 20081002
  3. METFORMIN (METFORMIN)(1000 MILLIGRAM, TABLET)(METFORMIN) [Concomitant]
  4. CARTIA (DILTIAZEM HYDROCHLORIDE)(180 MILLIGRAM, TABLET)(DILTIAZEM HYDR [Concomitant]
  5. SINGULAIR (MONTELUKAST)(TABLET)(MONTELUKAST) [Concomitant]

REACTIONS (8)
  - ANXIETY [None]
  - DEPRESSION [None]
  - HEART RATE INCREASED [None]
  - HEART RATE IRREGULAR [None]
  - MYALGIA [None]
  - PAIN IN EXTREMITY [None]
  - RESTLESS LEGS SYNDROME [None]
  - SOMNOLENCE [None]
